FAERS Safety Report 7415452-2 (Version None)
Quarter: 2011Q2

REPORT INFORMATION
  Report Type: 
  Country: None (occurrence: None)
  Receive Date: 20110414
  Receipt Date: 20110401
  Transmission Date: 20111010
  Serious: Yes (Other)
  Sender: FDA-Public Use
  Company Number: AU-JNJFOC-20110308924

PATIENT
  Sex: Male
  Weight: 55 kg

DRUGS (3)
  1. ANTIDEPRESSANT [Concomitant]
     Route: 065
  2. DURAGESIC-100 [Suspect]
     Indication: CANCER PAIN
     Route: 062
  3. TEMAZEPAM [Concomitant]
     Route: 065

REACTIONS (6)
  - AGGRESSION [None]
  - MENTAL STATUS CHANGES [None]
  - DRUG INEFFECTIVE [None]
  - WEIGHT DECREASED [None]
  - PARANOIA [None]
  - CONSTIPATION [None]
